FAERS Safety Report 5542754-7 (Version None)
Quarter: 2007Q4

REPORT INFORMATION
  Report Type: 
  Country: None (occurrence: None)
  Receive Date: 20071210
  Receipt Date: 20071129
  Transmission Date: 20080405
  Serious: Yes (Other)
  Sender: FDA-Public Use
  Company Number: US-PFIZER INC-2007078979

PATIENT
  Sex: Male
  Weight: 86 kg

DRUGS (5)
  1. DEPO-TESTOSTERONE [Suspect]
     Indication: HORMONE REPLACEMENT THERAPY
     Dosage: DAILY DOSE:100MG-FREQ:WEEKLY
  2. OXAZEPAM [Concomitant]
  3. LAMOTRIGINE [Concomitant]
  4. WELLBUTRIN [Concomitant]
  5. VIAGRA [Concomitant]
     Dosage: DAILY DOSE:25MG-FREQ:DAILY

REACTIONS (4)
  - APPENDICITIS [None]
  - DRUG INEFFECTIVE [None]
  - HAEMATOCRIT INCREASED [None]
  - POLYCYTHAEMIA [None]
